FAERS Safety Report 16548754 (Version 2)
Quarter: 2019Q3

REPORT INFORMATION
  Report Type: Spontaneous
  Country: US (occurrence: US)
  Receive Date: 20190709
  Receipt Date: 20190724
  Transmission Date: 20191004
  Serious: No
  Sender: FDA-Public Use
  Company Number: US-009507513-1907USA004162

PATIENT
  Age: 78 Year
  Sex: Female

DRUGS (2)
  1. ZETIA [Suspect]
     Active Substance: EZETIMIBE
     Dosage: OVER 3.5 YEARS AGO
     Route: 048
  2. PRALUENT [Suspect]
     Active Substance: ALIROCUMAB
     Dosage: UNK

REACTIONS (3)
  - Gait disturbance [Unknown]
  - Muscle spasms [Unknown]
  - Pain [Not Recovered/Not Resolved]

NARRATIVE: CASE EVENT DATE: 20190528
